FAERS Safety Report 6874861-0 (Version None)
Quarter: 2010Q3

REPORT INFORMATION
  Report Type: 
  Country: None (occurrence: None)
  Receive Date: 20100723
  Receipt Date: 20100716
  Transmission Date: 20110219
  Serious: Yes (Death, Life-Threatening, Other)
  Sender: FDA-Public Use
  Company Number: 2010JP003058

PATIENT
  Age: 36 Year
  Sex: Female
  Weight: 72.8 kg

DRUGS (3)
  1. PROGRAF [Suspect]
     Indication: BONE MARROW TRANSPLANT
     Dosage: 1 MG, UID/QD, IV DRIP ; 1 MG, UID/QD, IV DRIP
     Route: 041
     Dates: start: 20100412, end: 20100510
  2. PROGRAF [Suspect]
     Indication: BONE MARROW TRANSPLANT
     Dosage: 1 MG, UID/QD, IV DRIP ; 1 MG, UID/QD, IV DRIP
     Route: 041
     Dates: start: 20100513, end: 20100518
  3. PROGRAF [Suspect]
     Indication: BONE MARROW TRANSPLANT
     Dosage: 1.5 MG, BID, ORAL
     Route: 048
     Dates: start: 20100511, end: 20100512

REACTIONS (9)
  - ADENOVIRUS INFECTION [None]
  - CONTINUOUS HAEMODIAFILTRATION [None]
  - CYTOMEGALOVIRUS INFECTION [None]
  - ENCEPHALOPATHY [None]
  - HEPATIC FUNCTION ABNORMAL [None]
  - IMMUNOSUPPRESSANT DRUG LEVEL DECREASED [None]
  - SEPTIC SHOCK [None]
  - SHOCK [None]
  - SYSTEMIC CANDIDA [None]
